FAERS Safety Report 5188430-4 (Version None)
Quarter: 2006Q4

REPORT INFORMATION
  Report Type: 
  Country: None (occurrence: None)
  Receive Date: 20061221
  Receipt Date: 20061002
  Transmission Date: 20070319
  Serious: No
  Sender: FDA-Public Use
  Company Number: US-AMGEN-US195651

PATIENT
  Sex: Male

DRUGS (2)
  1. ENBREL [Suspect]
     Indication: PSORIATIC ARTHROPATHY
     Route: 058
     Dates: start: 20060901
  2. ENBREL [Suspect]
     Indication: PSORIASIS

REACTIONS (4)
  - CHILLS [None]
  - CONDITION AGGRAVATED [None]
  - PSORIATIC ARTHROPATHY [None]
  - PYREXIA [None]
